FAERS Safety Report 7648014-2 (Version None)
Quarter: 2011Q3

REPORT INFORMATION
  Report Type: 
  Country: None (occurrence: None)
  Receive Date: 20110801
  Receipt Date: 20110726
  Transmission Date: 20111222
  Serious: Yes (Death)
  Sender: FDA-Public Use
  Company Number: FR-ASTRAZENECA-2011SE44698

PATIENT
  Age: 176 Day
  Sex: Female
  Weight: 6.2 kg

DRUGS (13)
  1. ALDACTONE [Suspect]
     Dates: start: 20110531
  2. DIPRIVAN [Suspect]
     Indication: GENERAL ANAESTHESIA
     Route: 050
     Dates: start: 20110622
  3. PROPRANOLOL [Suspect]
     Route: 048
     Dates: start: 20110616
  4. VITAMIN K1 [Concomitant]
  5. ALBUMINE LFB [Suspect]
     Route: 050
     Dates: start: 20110531
  6. SEVOFLURANE [Suspect]
     Indication: GENERAL ANAESTHESIA
     Dosage: UNKNOWN DOSE ONCE/SINGLE ADMINISTRATION
     Route: 050
     Dates: start: 20110622
  7. SUFENTANIL CITRATE [Suspect]
     Indication: GENERAL ANAESTHESIA
     Dosage: UNKNOWN DOSE ONCE/SINGLE ADMINISTRATION
     Route: 050
     Dates: start: 20110622
  8. VEDROP [Concomitant]
  9. CELOCURINE [Suspect]
     Indication: GENERAL ANAESTHESIA
     Route: 050
     Dates: start: 20110622
  10. SANDOSTATIN [Suspect]
     Dates: start: 20110622
  11. URSO FALK [Concomitant]
  12. AETOXISCLEROL [Suspect]
     Indication: OESOPHAGEAL VARICEAL INJECTION
     Route: 050
     Dates: start: 20110622
  13. PROPRANOLOL [Suspect]
     Indication: HAEMANGIOMA OF SKIN
     Route: 048
     Dates: start: 20110609, end: 20110616

REACTIONS (3)
  - CARDIAC ARREST [None]
  - ATRIOVENTRICULAR BLOCK [None]
  - RHYTHM IDIOVENTRICULAR [None]
